FAERS Safety Report 6089666-0 (Version None)
Quarter: 2009Q1

REPORT INFORMATION
  Report Type: 
  Country: None (occurrence: None)
  Receive Date: 20090224
  Receipt Date: 20090219
  Transmission Date: 20090719
  Serious: No
  Sender: FDA-Public Use
  Company Number: US-B.I. PHARMACEUTICALS,INC./RIDGEFIELD-2009-BP-02126BP

PATIENT
  Sex: Male

DRUGS (3)
  1. ALUPENT [Suspect]
     Indication: ASTHMA
     Dosage: 1PUF
     Route: 055
     Dates: start: 20050101
  2. ZANTAC 150 [Suspect]
     Indication: DYSPEPSIA
     Route: 048
     Dates: start: 20080101
  3. ZANTAC 75 [Suspect]
     Indication: DYSPEPSIA
     Route: 048
     Dates: start: 20080101

REACTIONS (1)
  - NASOPHARYNGITIS [None]
